FAERS Safety Report 9352767 (Version 1)
Quarter: 2013Q2

REPORT INFORMATION
  Report Type: Spontaneous
  Country: US (occurrence: None)
  Receive Date: 20130614
  Receipt Date: 20130614
  Transmission Date: 20140414
  Serious: Yes (Other)
  Sender: FDA-Public Use
  Company Number: None

PATIENT
  Age: 38 Year
  Sex: Female

DRUGS (4)
  1. SIMPONI [Suspect]
     Indication: RHEUMATOID ARTHRITIS
     Dates: start: 20130520
  2. TRAMADOL [Concomitant]
  3. METHATREXATE [Concomitant]
  4. FOLIC ACID [Concomitant]

REACTIONS (3)
  - Palpitations [None]
  - Fatigue [None]
  - Dyspnoea [None]
